FAERS Safety Report 20874365 (Version 1)
Quarter: 2022Q2

REPORT INFORMATION
  Report Type: Report from Study
  Country: FR (occurrence: FR)
  Receive Date: 20220525
  Receipt Date: 20220525
  Transmission Date: 20220721
  Serious: Yes (Death, Other)
  Sender: FDA-Public Use
  Company Number: FR-CELGENE-FRA-20210802150

PATIENT
  Age: 63 Year
  Sex: Male

DRUGS (20)
  1. LENALIDOMIDE [Suspect]
     Active Substance: LENALIDOMIDE
     Indication: Plasma cell myeloma
     Route: 048
     Dates: start: 20200127, end: 20200706
  2. DEXAMETHASONE [Suspect]
     Active Substance: DEXAMETHASONE
     Indication: Plasma cell myeloma
     Dosage: 20 MILLIGRAM / C1 TO C6 : 20MG/DAY ON DAYS 1-2-8-9-15-16-22-23
     Route: 048
     Dates: start: 20200127, end: 20200708
  3. KYPROLIS [Suspect]
     Active Substance: CARFILZOMIB
     Indication: Plasma cell myeloma
     Dosage: 38.8 MILLIGRAM / INDUCTION C1 20MG/M^2 DAY1-2
     Route: 042
     Dates: start: 20200127, end: 20200128
  4. KYPROLIS [Suspect]
     Active Substance: CARFILZOMIB
     Dosage: 69.8 MILLIGRAM / INDUCTION C1 DAYS 8-9 AND 15-16 36 MG/M^2
     Route: 042
     Dates: start: 20200204, end: 20200212
  5. KYPROLIS [Suspect]
     Active Substance: CARFILZOMIB
     Dosage: 69.8 MILLIGRAM / INDUCTION C2 TO C6 DAYS 1-2, 8-9, 15-16 36 MG/M^2 (70MG/DAY DURING C2 AND C6)
     Route: 042
     Dates: start: 20200225, end: 20200701
  6. KYPROLIS [Suspect]
     Active Substance: CARFILZOMIB
     Dosage: 39 MILLIGRAM / CONSOLIDATION (4 CYCLES) DAY 1 20 MG/M^2 (C7)
     Route: 042
     Dates: start: 20201008, end: 20201008
  7. KYPROLIS [Suspect]
     Active Substance: CARFILZOMIB
     Dosage: 109 MILLIGRAM / CONSOLIDATION (4 CYCLES)DAY 8 AND 15 56 MG/M^2 (C7)
     Route: 042
     Dates: start: 20201015, end: 20201022
  8. KYPROLIS [Suspect]
     Active Substance: CARFILZOMIB
     Dosage: 108 MILLIGRAM / CONSOLIDATION (4 CYCLES) C8 TO C10 56 MGM^2
     Route: 042
     Dates: start: 20201105, end: 20210114
  9. DARZALEX [Suspect]
     Active Substance: DARATUMUMAB
     Indication: Plasma cell myeloma
     Dosage: 704 MILLIGRAM / INDUCTION C1 DAY 1-2 : 8 MG/KG
     Route: 042
     Dates: start: 20200227, end: 20200228
  10. DARZALEX [Suspect]
     Active Substance: DARATUMUMAB
     Dosage: 1408 MILLIGRAM / INDUCTION C2 DAYS 8- 15-22 16 MG/KG
     Route: 042
     Dates: start: 20200227, end: 20200317
  11. DARZALEX [Suspect]
     Active Substance: DARATUMUMAB
     Dosage: 408 MILLIGRAM / INDUCTION C3 TO C6 DAYS
     Route: 042
     Dates: start: 20200324, end: 20200630
  12. DARZALEX [Suspect]
     Active Substance: DARATUMUMAB
     Dosage: 1408 MILLIGRAM / CONSOLIDATION (4 CYCLES) C7 TO C10 DAY 1-15 : 16 MG/KG
     Route: 042
     Dates: start: 20201008, end: 20210114
  13. DARZALEX [Suspect]
     Active Substance: DARATUMUMAB
     Dosage: 16 MILLIGRAM/KILOGRAM
     Route: 042
     Dates: start: 20210325, end: 20210520
  14. CYCLOPHOSPHAMIDE [Concomitant]
     Active Substance: CYCLOPHOSPHAMIDE
     Indication: Product used for unknown indication
     Dosage: FREQUENCY TEXT: NOT PROVIDED
     Route: 065
     Dates: start: 20210130
  15. MELPHALAN [Concomitant]
     Active Substance: MELPHALAN
     Indication: Product used for unknown indication
     Dosage: FREQUENCY TEXT: NOT PROVIDED
     Route: 065
     Dates: start: 20200727
  16. GRANULOCYTE COLONY-STIMULATING FACTOR NOS [Concomitant]
     Active Substance: GRANULOCYTE COLONY-STIMULATING FACTOR NOS
     Indication: Product used for unknown indication
     Dosage: FREQUENCY TEXT: NOT PROVIDED
     Route: 065
     Dates: start: 20200727, end: 20200806
  17. GRANULOCYTE COLONY-STIMULATING FACTOR NOS [Concomitant]
     Active Substance: GRANULOCYTE COLONY-STIMULATING FACTOR NOS
     Dosage: FREQUENCY TEXT: NOT PROVIDED
     Route: 065
     Dates: start: 20210206, end: 20210214
  18. PLERIXAFOR [Concomitant]
     Active Substance: PLERIXAFOR
     Indication: Product used for unknown indication
     Dosage: FREQUENCY TEXT: NOT PROVIDED
     Route: 065
     Dates: start: 20200727, end: 20200806
  19. PROPRANOLOL [Concomitant]
     Active Substance: PROPRANOLOL HYDROCHLORIDE
     Indication: Tremor
     Dosage: FREQUENCY TEXT: NOT PROVIDED
     Route: 065
     Dates: start: 202108, end: 20210803
  20. LEVODOPA [Concomitant]
     Active Substance: LEVODOPA
     Indication: Product used for unknown indication
     Dosage: FREQUENCY TEXT: NOT PROVIDED
     Route: 065
     Dates: start: 20210803

REACTIONS (1)
  - Progressive multifocal leukoencephalopathy [Fatal]

NARRATIVE: CASE EVENT DATE: 20210408
